FAERS Safety Report 5422357-5 (Version None)
Quarter: 2007Q3

REPORT INFORMATION
  Report Type: 
  Country: None (occurrence: None)
  Receive Date: 20070822
  Receipt Date: 20070807
  Transmission Date: 20080115
  Serious: Yes (Hospitalization, Other)
  Sender: FDA-Public Use
  Company Number: GB-ASTRAZENECA-2007SE04474

PATIENT
  Age: 70 Year
  Sex: Female
  Weight: 87 kg

DRUGS (9)
  1. AMIAS [Suspect]
     Route: 048
     Dates: start: 20070115
  2. XENICAL [Suspect]
     Indication: OBESITY
     Route: 048
     Dates: start: 20060815
  3. AMLODIPINE [Concomitant]
     Route: 065
  4. AZITHROMYCIN [Concomitant]
     Route: 065
  5. BUDESONIDE [Concomitant]
     Route: 055
  6. DOXAZOSIN MESYLATE [Concomitant]
     Route: 065
  7. FORMOTEROL FUMARATE [Concomitant]
     Route: 055
  8. PRAVASTATIN [Concomitant]
     Route: 065
  9. SALBUTAMOL [Concomitant]
     Route: 065

REACTIONS (1)
  - ATRIAL FIBRILLATION [None]
